FAERS Safety Report 9412426 (Version 1)
Quarter: 2013Q3

REPORT INFORMATION
  Report Type: Spontaneous
  Country: FR (occurrence: FR)
  Receive Date: 20130722
  Receipt Date: 20130722
  Transmission Date: 20140515
  Serious: Yes (Life-Threatening, Hospitalization, Other)
  Sender: FDA-Public Use
  Company Number: FR-ELI_LILLY_AND_COMPANY-FR201307003788

PATIENT
  Age: 47 Year
  Sex: Female
  Weight: 93 kg

DRUGS (2)
  1. ZYPREXA [Suspect]
     Indication: BIPOLAR DISORDER
     Dosage: UNK
     Route: 048
     Dates: start: 2007
  2. MINIDRIL [Suspect]
     Indication: ORAL CONTRACEPTION
     Dosage: UNK
     Route: 048
     Dates: start: 200807

REACTIONS (9)
  - Cerebral venous thrombosis [Recovered/Resolved]
  - Dyspnoea [Unknown]
  - Ear discomfort [Recovered/Resolved]
  - Vertigo [Recovered/Resolved]
  - Cerebellar syndrome [Recovered/Resolved]
  - Paraesthesia [Recovered/Resolved]
  - Thoracic outlet syndrome [Recovered/Resolved]
  - Varicose vein [Unknown]
  - Photophobia [Recovered/Resolved]
